FAERS Safety Report 9649297 (Version 1)
Quarter: 2013Q4

REPORT INFORMATION
  Report Type: Spontaneous
  Country: US (occurrence: None)
  Receive Date: 20131018
  Receipt Date: 20131018
  Transmission Date: 20140711
  Serious: No
  Sender: FDA-Public Use
  Company Number: AEGR000102

PATIENT
  Age: 58 Year
  Sex: Female
  Weight: 68.04 kg

DRUGS (10)
  1. JUXTAPID (LOMITAPIDE) CAPSULE, 5 MG [Suspect]
     Indication: TYPE IIA HYPERLIPIDAEMIA
     Route: 048
     Dates: start: 20130712
  2. ACTOS (PIOGLITAZONE HYDROCHLORIDE) [Concomitant]
  3. BENADRYL (DIPHENHYDRAMINE HYDROCHLORIDE) [Concomitant]
  4. CELEBREX (CELECOXIB) [Concomitant]
  5. FLONASE (FLUTICASONE PROPIONATE) [Concomitant]
  6. GLIPIZIDE (GLIPIZIDE) [Concomitant]
  7. NEXIUM (ESOMEPRAZOLE MAGNESIUM) [Concomitant]
  8. PROAIR HFA [Concomitant]
  9. SYNTHROID (LEVOTHYROXINE SODIUM) [Concomitant]
  10. ULTRAM ER (TRAMADOL HYDROCHLORIDE) [Concomitant]

REACTIONS (2)
  - Abdominal pain lower [None]
  - Weight decreased [None]
